FAERS Safety Report 4930183-6 (Version None)
Quarter: 2006Q1

REPORT INFORMATION
  Report Type: 
  Country: None (occurrence: None)
  Receive Date: 20060302
  Receipt Date: 20051024
  Transmission Date: 20060701
  Serious: Yes (Disabling)
  Sender: FDA-Public Use
  Company Number: FR-ROCHE-426636

PATIENT
  Age: 9 Year
  Sex: Male

DRUGS (2)
  1. ROCEPHIN [Suspect]
     Indication: PYELONEPHRITIS
     Dosage: FOR 48 HOURS WITH AMIKACIN AND ALONE FOR SEVEN DAYS.
     Route: 065
     Dates: start: 19960416, end: 19960423
  2. AMIKLIN [Suspect]
     Indication: PYELONEPHRITIS
     Route: 042
     Dates: start: 19960416, end: 19960417

REACTIONS (1)
  - DEAFNESS [None]
